FAERS Safety Report 18877469 (Version 2)
Quarter: 2021Q1

REPORT INFORMATION
  Report Type: Spontaneous
  Country: JP (occurrence: JP)
  Receive Date: 20210211
  Receipt Date: 20210318
  Transmission Date: 20210420
  Serious: Yes (Hospitalization)
  Sender: FDA-Public Use
  Company Number: JP-ASTRAZENECA-2020SF65840

PATIENT
  Age: 71 Year
  Sex: Female
  Weight: 47 kg

DRUGS (14)
  1. ROSUVASTATIN OD [Concomitant]
  2. MANNITOL. [Concomitant]
     Active Substance: MANNITOL
     Indication: VOMITING
  3. RECALBON [Concomitant]
     Indication: PROPHYLAXIS
     Dates: start: 20201126
  4. PROEMEND [Concomitant]
     Active Substance: FOSAPREPITANT
     Indication: VOMITING
  5. JANUVIA [Concomitant]
     Active Substance: SITAGLIPTIN PHOSPHATE
  6. LANSOPRAZOLE OD [Concomitant]
     Active Substance: LANSOPRAZOLE
     Indication: PROPHYLAXIS
     Dates: start: 20201117
  7. MEDICON [Concomitant]
     Active Substance: DEXTROMETHORPHAN HYDROBROMIDE
  8. IMFINZI [Suspect]
     Active Substance: DURVALUMAB
     Indication: NON-SMALL CELL LUNG CANCER
     Route: 041
     Dates: start: 20201222, end: 20210119
  9. DAIPHEN [Concomitant]
     Active Substance: SULFAMETHOXAZOLE\TRIMETHOPRIM
     Indication: PROPHYLAXIS
     Dates: start: 20201126
  10. ALOXI [Concomitant]
     Active Substance: PALONOSETRON HYDROCHLORIDE
     Indication: VOMITING
  11. URSO [Concomitant]
     Active Substance: URSODIOL
  12. VOGLIBOSE OD [Concomitant]
     Active Substance: VOGLIBOSE
  13. NOVORAPID [Concomitant]
     Active Substance: INSULIN ASPART
  14. IMFINZI [Suspect]
     Active Substance: DURVALUMAB
     Indication: NON-SMALL CELL LUNG CANCER
     Route: 041
     Dates: start: 20201104, end: 20201104

REACTIONS (3)
  - Decreased appetite [Recovering/Resolving]
  - Radiation pneumonitis [Recovering/Resolving]
  - Blood glucose increased [Recovering/Resolving]

NARRATIVE: CASE EVENT DATE: 2020
